FAERS Safety Report 23379100 (Version 1)
Quarter: 2024Q1

REPORT INFORMATION
  Report Type: Spontaneous
  Country: US (occurrence: None)
  Receive Date: 20240108
  Receipt Date: 20240108
  Transmission Date: 20240410
  Serious: Yes (Death)
  Sender: FDA-Public Use
  Company Number: None

PATIENT
  Age: 75 Year
  Sex: Female

DRUGS (10)
  1. CINACALCET [Suspect]
     Active Substance: CINACALCET
  2. OPSUMIT [Concomitant]
  3. TADALAFIL [Concomitant]
     Active Substance: TADALAFIL
  4. ASPIRIN [Concomitant]
  5. COLACE [Concomitant]
  6. FERROUS SULFATE [Concomitant]
  7. LASIX [Concomitant]
     Active Substance: FUROSEMIDE
  8. HUMIRA PEN [Concomitant]
  9. OSTEO BI FLEX R/S CAPLETS [Concomitant]
  10. LIPITOR [Concomitant]

REACTIONS (1)
  - Death [None]
